FAERS Safety Report 6120308-1 (Version None)
Quarter: 2009Q1

REPORT INFORMATION
  Report Type: 
  Country: None (occurrence: None)
  Receive Date: 20090312
  Receipt Date: 20090303
  Transmission Date: 20090719
  Serious: No
  Sender: FDA-Public Use
  Company Number: 09P-229-0497566-00

PATIENT
  Sex: Female

DRUGS (28)
  1. SYNAGIS [Suspect]
     Indication: CARDIOVASCULAR EVALUATION
     Dosage: 80 MG, 1 IN 1 M INTRAMUSCULAR
     Route: 030
     Dates: start: 20081222
  2. CIPROFLOXACIN [Suspect]
  3. CEFTRIAXONE [Concomitant]
  4. GENTAMICIN [Concomitant]
  5. TEICOPLANIN (TEICOPLANIN) [Concomitant]
  6. VANCOMYCIN [Concomitant]
  7. KAPSOVIT (ERGOCALCIFEROL, ASCORBIC ACID, THIAMINE HYDROCHLORIDE, RETIN [Concomitant]
  8. FERROUS SULFATE TAB [Concomitant]
  9. ALFACALCIDOL (DROPS) (ALFACALCIDOL) [Concomitant]
  10. MAGNESIUM GLYCEROPHOSPHATE (SOLUTION) (MAGNESIUM GLYCEROPHOSPHATE) [Concomitant]
  11. FUROSEMIDE [Concomitant]
  12. ACETYLSALICYLIC ACID SRT [Concomitant]
  13. CALCIUM GLUCONATE (SYRUP) (CALCIUM GLUCONATE) [Concomitant]
  14. POTASSIUM CHLORIDE (SYRUO) (POTASSIUM CHLORIDE) [Concomitant]
  15. CLONIDINE (SUSPENSION) (CLONIDINE) [Concomitant]
  16. MORPHINE SULFATE INJ [Concomitant]
  17. MILRINONE (MILRINONE) [Concomitant]
  18. TRICLOFOS (SYRUP) (TRICLOFOS) [Concomitant]
  19. ACETAMINOPHEN [Concomitant]
  20. CIPROFLOXACIN (SUSPENSION) (CIPROFLOXACIN) [Concomitant]
  21. MEROPENEM (MEROPENEM) [Concomitant]
  22. ERYTHROMYCIN ETHYLSUCCINATE (SUSPENSION) (ERYTHROMYCIN ETHYLSUCCINATE) [Concomitant]
  23. RANITIDINE [Concomitant]
  24. SPIRONOLACTONE (SUSPENSION) (SPIRONOLACTONE) [Concomitant]
  25. ACETAZOLAMIDE [Concomitant]
  26. KETAMINE HCL [Concomitant]
  27. PHYTONADIONE [Concomitant]
  28. LINEZOLID [Concomitant]

REACTIONS (2)
  - ALANINE AMINOTRANSFERASE INCREASED [None]
  - ASPARTATE AMINOTRANSFERASE INCREASED [None]
